FAERS Safety Report 24142710 (Version 1)
Quarter: 2024Q3

REPORT INFORMATION
  Report Type: Spontaneous
  Country: US (occurrence: US)
  Receive Date: 20240726
  Receipt Date: 20240726
  Transmission Date: 20241017
  Serious: Yes (Other)
  Sender: MERCK
  Company Number: US-009507513-2407USA012890

PATIENT
  Sex: Male

DRUGS (1)
  1. KEYTRUDA [Suspect]
     Active Substance: PEMBROLIZUMAB
     Indication: Squamous cell carcinoma of skin
     Dosage: UNK, Q3W
     Route: 042

REACTIONS (4)
  - Lymphoma [Unknown]
  - Recurrent cancer [Unknown]
  - Lymphoedema [Unknown]
  - Feeling cold [Unknown]
